FAERS Safety Report 9219848 (Version 1)
Quarter: 2013Q2

REPORT INFORMATION
  Report Type: Spontaneous
  Country: GB (occurrence: GB)
  Receive Date: 20130409
  Receipt Date: 20130409
  Transmission Date: 20140414
  Serious: Yes (Death)
  Sender: FDA-Public Use
  Company Number: GB-ROCHE-1206918

PATIENT
  Sex: Male

DRUGS (2)
  1. ACTILYSE [Suspect]
     Indication: THROMBOLYSIS
     Route: 042
     Dates: start: 20110610
  2. ASPIRIN [Concomitant]
     Indication: CEREBROVASCULAR ACCIDENT PROPHYLAXIS
     Route: 065
     Dates: start: 1996, end: 20110616

REACTIONS (3)
  - Cerebral haemorrhage [Fatal]
  - Haemorrhage [Fatal]
  - Bronchopneumonia [Fatal]
